FAERS Safety Report 18588655 (Version 7)
Quarter: 2022Q1

REPORT INFORMATION
  Report Type: Spontaneous
  Country: US (occurrence: US)
  Receive Date: 20201207
  Receipt Date: 20220117
  Transmission Date: 20220423
  Serious: Yes (Other)
  Sender: FDA-Public Use
  Company Number: US-PFIZER INC-2020476711

PATIENT
  Age: 73 Year

DRUGS (1)
  1. CADUET [Suspect]
     Active Substance: AMLODIPINE BESYLATE\ATORVASTATIN CALCIUM
     Dosage: AMLODIPINE 10 MG/ATORVASTATIN 80 MG

REACTIONS (11)
  - Renal mass [Unknown]
  - Glaucoma [Unknown]
  - Blindness [Not Recovered/Not Resolved]
  - Product dose omission issue [Unknown]
  - Hypersensitivity [Unknown]
  - Sneezing [Unknown]
  - Gastrointestinal disorder [Unknown]
  - Insomnia [Unknown]
  - Blood pressure decreased [Unknown]
  - Weight decreased [Unknown]
  - Photophobia [Unknown]

NARRATIVE: CASE EVENT DATE: 20211208
